FAERS Safety Report 8243268 (Version 6)
Quarter: 2012Q4

REPORT INFORMATION
  Report Type: 
  Country: NL (occurrence: NL)
  Receive Date: 20111114
  Receipt Date: 20120904
  Transmission Date: 20130627
  Serious: Yes (Hospitalization, Other)
  Sender: FDA-Public Use
  Company Number: NL-MEDIMMUNE-MEDI-0013864

PATIENT
  Age: 1 Month
  Sex: Male
  Weight: 9.9 kg

DRUGS (9)
  1. SYNAGIS [Suspect]
     Indication: BRONCHOPULMONARY DYSPLASIA
     Route: 030
     Dates: start: 20110912, end: 20110912
  2. SYNAGIS [Suspect]
     Indication: BRONCHOPULMONARY DYSPLASIA
     Route: 030
     Dates: start: 20111006, end: 20111006
  3. SYNAGIS [Suspect]
     Indication: BRONCHOPULMONARY DYSPLASIA
     Route: 030
     Dates: start: 20111103, end: 20111103
  4. SYNAGIS [Suspect]
     Indication: BRONCHOPULMONARY DYSPLASIA
     Route: 030
     Dates: start: 20111201, end: 20111201
  5. SYNAGIS [Suspect]
     Indication: BRONCHOPULMONARY DYSPLASIA
  6. BECLOMETASONE DIPROPIONATE [Concomitant]
  7. BACTRIM [Concomitant]
  8. SALBUTAMOL SULFATE [Concomitant]
     Dates: end: 2011
  9. MONTELUKAST SODIUM [Concomitant]
     Dates: end: 2011

REACTIONS (7)
  - Pulmonary necrosis [Recovered/Resolved with Sequelae]
  - Hospitalisation [Recovered/Resolved]
  - Dyspnoea [Recovered/Resolved]
  - Papule [Recovered/Resolved]
  - Body temperature increased [Recovered/Resolved]
  - Wheezing [Not Recovered/Not Resolved]
  - Bronchial hyperreactivity [Not Recovered/Not Resolved]
